FAERS Safety Report 18603979 (Version 1)
Quarter: 2020Q4

REPORT INFORMATION
  Report Type: Spontaneous
  Country: IT (occurrence: IT)
  Receive Date: 20201211
  Receipt Date: 20201211
  Transmission Date: 20210114
  Serious: Yes (Other)
  Sender: FDA-Public Use
  Company Number: IT-LUPIN PHARMACEUTICALS INC.-2020-10156

PATIENT
  Age: 86 Year
  Sex: Male

DRUGS (6)
  1. POTASSIUM CHLORIDE. [Suspect]
     Active Substance: POTASSIUM CHLORIDE
     Indication: COVID-19
     Dosage: 600 MILLIGRAM, QD
     Route: 065
  2. CEFTRIAXONE. [Suspect]
     Active Substance: CEFTRIAXONE
     Indication: COVID-19
     Dosage: 2 GRAM, QD
     Route: 065
  3. NYSTATIN. [Suspect]
     Active Substance: NYSTATIN
     Indication: COVID-19
     Dosage: 100 INTERNATIONAL UNIT, QD
     Route: 065
  4. CLEXANE [Suspect]
     Active Substance: ENOXAPARIN SODIUM
     Indication: COVID-19
     Dosage: 400 MILLIGRAM, QD
     Route: 065
  5. ARIPIPRAZOLE. [Concomitant]
     Active Substance: ARIPIPRAZOLE
     Indication: DELIRIUM
     Dosage: 9.75MG/1.3ML
     Route: 030
  6. HALOPERIDOL. [Suspect]
     Active Substance: HALOPERIDOL
     Indication: COVID-19
     Dosage: 0.5 MILLIGRAM, QD
     Route: 065

REACTIONS (1)
  - Off label use [Unknown]
